FAERS Safety Report 7885653-8 (Version None)
Quarter: 2011Q4

REPORT INFORMATION
  Report Type: 
  Country: None (occurrence: None)
  Receive Date: 20111102
  Receipt Date: 20110623
  Transmission Date: 20120403
  Serious: No
  Sender: FDA-Public Use
  Company Number: US-AMGEN-USASP2011032381

PATIENT
  Age: 34 Year
  Sex: Male

DRUGS (1)
  1. ENBREL [Suspect]
     Indication: PSORIATIC ARTHROPATHY
     Dosage: 50 MG, QWK
     Dates: start: 20110501

REACTIONS (6)
  - NAUSEA [None]
  - FATIGUE [None]
  - INFLUENZA LIKE ILLNESS [None]
  - ASTHENIA [None]
  - PAIN [None]
  - PYREXIA [None]
